FAERS Safety Report 8479810-X (Version None)
Quarter: 2012Q2

REPORT INFORMATION
  Report Type: 
  Country: None (occurrence: None)
  Receive Date: 20120629
  Receipt Date: 20120619
  Transmission Date: 20120825
  Serious: Yes (Other)
  Sender: FDA-Public Use
  Company Number: JP-VERTEX PHARMACEUTICALS INC.-AE-2012-003756

PATIENT
  Age: 25 Year
  Sex: Male

DRUGS (13)
  1. REBETOL [Concomitant]
     Route: 048
     Dates: start: 20120123, end: 20120206
  2. PEGINTERFERON ALFA-2A [Concomitant]
     Indication: HEPATITIS C
     Route: 058
     Dates: start: 20111213
  3. XYZAL [Concomitant]
     Route: 048
     Dates: start: 20111213
  4. TELAVIC (TELAPREVIR) [Suspect]
     Indication: HEPATITIS C
     Route: 048
     Dates: start: 20111213, end: 20120304
  5. REBETOL [Concomitant]
     Route: 048
     Dates: start: 20120228, end: 20120305
  6. REBETOL [Concomitant]
     Route: 048
     Dates: start: 20120221, end: 20120227
  7. REBETOL [Concomitant]
     Route: 048
     Dates: start: 20111227, end: 20120109
  8. REBETOL [Concomitant]
     Route: 048
     Dates: start: 20120110, end: 20120122
  9. REBETOL [Concomitant]
     Route: 048
     Dates: start: 20120207, end: 20120220
  10. LOCHOLEST [Concomitant]
     Route: 048
     Dates: start: 20111213
  11. SELBEX [Concomitant]
     Route: 048
     Dates: start: 20111213
  12. REBETOL [Concomitant]
     Route: 048
     Dates: start: 20120306
  13. REBETOL [Concomitant]
     Indication: HEPATITIS C
     Route: 048
     Dates: start: 20111213, end: 20111226

REACTIONS (1)
  - WHITE BLOOD CELL COUNT DECREASED [None]
